FAERS Safety Report 5116590-X (Version None)
Quarter: 2006Q3

REPORT INFORMATION
  Report Type: 
  Country: None (occurrence: None)
  Receive Date: 20060928
  Receipt Date: 20060926
  Transmission Date: 20061208
  Serious: Yes (Death)
  Sender: FDA-Public Use
  Company Number: GB-GLAXOSMITHKLINE-B0439561A

PATIENT
  Sex: Male

DRUGS (2)
  1. NYTOL [Suspect]
     Route: 048
  2. ALCOHOL [Suspect]
     Route: 048

REACTIONS (1)
  - OVERDOSE [None]
